FAERS Safety Report 21333002 (Version 1)
Quarter: 2022Q3

REPORT INFORMATION
  Report Type: Report from Study
  Country: TR (occurrence: TR)
  Receive Date: 20220914
  Receipt Date: 20220914
  Transmission Date: 20221027
  Serious: Yes (Death)
  Sender: FDA-Public Use
  Company Number: TR-BIOGEN-2022BI01153732

PATIENT

DRUGS (1)
  1. SPINRAZA [Suspect]
     Active Substance: NUSINERSEN
     Indication: Product used for unknown indication
     Route: 050
     Dates: end: 20220803

REACTIONS (1)
  - Death [Fatal]

NARRATIVE: CASE EVENT DATE: 20220906
